FAERS Safety Report 12187324 (Version 1)
Quarter: 2016Q1

REPORT INFORMATION
  Report Type: Report from Study
  Country: GR (occurrence: GR)
  Receive Date: 20160317
  Receipt Date: 20160317
  Transmission Date: 20160526
  Serious: Yes (Hospitalization, Other)
  Sender: FDA-Public Use
  Company Number: GR-KADMON PHARMACEUTICALS, LLC-KAD201508-002708

PATIENT
  Age: 61 Year
  Sex: Male
  Weight: 74.8 kg

DRUGS (7)
  1. EUCREAS [Concomitant]
     Active Substance: METFORMIN HYDROCHLORIDE\VILDAGLIPTIN
     Indication: DIABETES MELLITUS
     Route: 048
     Dates: start: 201410, end: 20150720
  2. OLARTAN [Concomitant]
     Indication: HYPERTENSION
     Route: 048
     Dates: start: 200712, end: 20150513
  3. MODURETIC 5-50 [Concomitant]
     Active Substance: AMILORIDE HYDROCHLORIDE\HYDROCHLOROTHIAZIDE
     Indication: HYPERTENSION
     Route: 048
     Dates: start: 20150314
  4. DEPON [Concomitant]
     Active Substance: ACETAMINOPHEN
     Indication: HEADACHE
     Route: 048
     Dates: start: 20150516, end: 20150516
  5. RIBAVIRIN 200 MG TABLETS [Suspect]
     Active Substance: RIBAVIRIN
     Dosage: TOTAL DAILY DOSE 1000 MG DIVIDED TWICE DAILY (1 IN 1 DAY)
     Route: 048
     Dates: start: 20150529
  6. RIBAVIRIN 200 MG TABLETS [Suspect]
     Active Substance: RIBAVIRIN
     Indication: CHRONIC HEPATITIS C
     Dosage: TOTAL DAILY DOSE 1200 MG DIVIDED TWICE DAILY (200 MG, 1 IN 1 DAY)
     Route: 048
     Dates: start: 20150515, end: 20150528
  7. OMBITASVIR/PARITAPREVIR/RITONAVIR [Suspect]
     Active Substance: OMBITASVIR\PARITAPREVIR\RITONAVIR
     Indication: CHRONIC HEPATITIS C
     Dosage: TABLET
     Route: 048
     Dates: start: 20150515

REACTIONS (1)
  - Acute coronary syndrome [Recovered/Resolved]

NARRATIVE: CASE EVENT DATE: 20150629
